FAERS Safety Report 9049672 (Version 1)
Quarter: 2013Q1

REPORT INFORMATION
  Report Type: Spontaneous
  Country: CO (occurrence: CO)
  Receive Date: 20130205
  Receipt Date: 20130205
  Transmission Date: 20140127
  Serious: Yes (Death)
  Sender: FDA-Public Use
  Company Number: CO-ABBOTT-13P-036-1045167-00

PATIENT
  Age: 64 None
  Sex: Male
  Weight: 77 kg

DRUGS (1)
  1. ZEMPLAR [Suspect]
     Indication: HYPERPARATHYROIDISM SECONDARY
     Route: 042
     Dates: start: 20121102, end: 20130103

REACTIONS (2)
  - Cerebrovascular accident [Fatal]
  - Brain death [Fatal]
